FAERS Safety Report 22230765 (Version 1)
Quarter: 2023Q2

REPORT INFORMATION
  Report Type: Spontaneous
  Country: RU (occurrence: RU)
  Receive Date: 20230420
  Receipt Date: 20230420
  Transmission Date: 20230722
  Serious: Yes (Other)
  Sender: FDA-Public Use
  Company Number: RU-ABBVIE-4735478

PATIENT
  Age: 42 Year
  Sex: Male
  Weight: 70 kg

DRUGS (6)
  1. KALETRA [Suspect]
     Active Substance: LOPINAVIR\RITONAVIR
     Indication: Blood disorder
     Route: 048
     Dates: start: 20200407, end: 20200430
  2. ISONIAZID [Concomitant]
     Active Substance: ISONIAZID
     Indication: Product used for unknown indication
     Route: 048
     Dates: start: 20200409
  3. PYRIDOXINE [Concomitant]
     Active Substance: PYRIDOXINE
     Indication: Product used for unknown indication
     Route: 048
     Dates: start: 20200407
  4. TENOFOVIR\TENOFOVIR DISOPROXIL FUMARATE [Concomitant]
     Active Substance: TENOFOVIR\TENOFOVIR DISOPROXIL FUMARATE
     Indication: Product used for unknown indication
     Dates: start: 20200407
  5. COTRIMOXAZOLE [Concomitant]
     Active Substance: SULFAMETHOXAZOLE\TRIMETHOPRIM
     Indication: Product used for unknown indication
     Route: 048
     Dates: start: 20200409
  6. LAMIVUDINE [Concomitant]
     Active Substance: LAMIVUDINE
     Indication: Product used for unknown indication
     Route: 048
     Dates: start: 20200407

REACTIONS (3)
  - Irritability [Recovered/Resolved]
  - Asthenia [Recovered/Resolved]
  - Diarrhoea [Recovered/Resolved]

NARRATIVE: CASE EVENT DATE: 20200401
